FAERS Safety Report 7437189-6 (Version None)
Quarter: 2011Q2

REPORT INFORMATION
  Report Type: 
  Country: None (occurrence: None)
  Receive Date: 20110426
  Receipt Date: 20090930
  Transmission Date: 20111010
  Serious: Yes (Hospitalization, Other)
  Sender: FDA-Public Use
  Company Number: US-BAYER-200934735NA

PATIENT
  Sex: Male
  Weight: 68.345 kg

DRUGS (20)
  1. LOPRESSOR [Concomitant]
     Dosage: 25 MG, BID
  2. GENTAMICIN [Concomitant]
     Dosage: 80 MG, UNK
     Dates: start: 20050506
  3. DOPAMINE HCL [Concomitant]
  4. PLAVIX [Concomitant]
     Dosage: 75 MG, QD
  5. PROTONIX [Concomitant]
     Dosage: 40 MG, QD
  6. ANCEF [Concomitant]
     Dosage: 1 G, UNK
     Dates: start: 20050506
  7. PROTAMINE SULFATE [Concomitant]
     Dosage: 20 MG, UNK
     Route: 042
     Dates: start: 20050506
  8. VERSED [Concomitant]
     Dosage: 5 MG, UNK
     Dates: start: 20050506
  9. MEDROXYPROGESTERONE [Concomitant]
     Dosage: 5 MG, QD
  10. PLASMALYTE 56 IN 5% DEXTROSE [Concomitant]
     Dosage: DRIP TO KEEP VEIN OPEN
     Route: 042
     Dates: start: 20050506
  11. TRASYLOL [Suspect]
     Indication: CARDIAC OPERATION
     Dosage: 2,000,000 KIU, FOLLOWED BY 50CC/HR
     Route: 042
     Dates: start: 20050506, end: 20050506
  12. ZOCOR [Concomitant]
     Dosage: 20 MG, QD
  13. HEPARIN [Concomitant]
     Dosage: 2,000 UNITS
     Dates: start: 20050506, end: 20050506
  14. ALTACE [Concomitant]
     Dosage: 2.5 MG, QD
  15. ANECTINE [Concomitant]
     Dosage: 120 MG, UNK
     Dates: start: 20050506
  16. PHENYLEPHRINE HCL [Concomitant]
     Dosage: 10 MG, UNK
     Dates: start: 20050506
  17. BUMEX [Concomitant]
     Dosage: 2 MG, UNK
     Dates: start: 20050506
  18. TRASYLOL [Suspect]
     Indication: CORONARY ARTERY BYPASS
  19. MANNITOL [Concomitant]
     Dosage: UNK
     Dates: start: 20050506
  20. DOBUTAMINE HCL [Concomitant]
     Dosage: UNK
     Dates: start: 20050506

REACTIONS (8)
  - ANXIETY [None]
  - DEPRESSION [None]
  - ANHEDONIA [None]
  - INJURY [None]
  - RENAL FAILURE [None]
  - UNEVALUABLE EVENT [None]
  - FEAR [None]
  - PAIN [None]
